FAERS Safety Report 11696546 (Version 1)
Quarter: 2015Q4

REPORT INFORMATION
  Report Type: Spontaneous
  Country: US (occurrence: US)
  Receive Date: 20151104
  Receipt Date: 20151104
  Transmission Date: 20160304
  Serious: Yes (Other)
  Sender: FDA-Public Use
  Company Number: US-ASTRAZENECA-2013SE77130

PATIENT
  Age: 759 Month
  Sex: Female
  Weight: 93 kg

DRUGS (36)
  1. BYETTA [Suspect]
     Active Substance: EXENATIDE
     Route: 065
     Dates: start: 20130205
  2. ACCUPRIL [Concomitant]
     Active Substance: QUINAPRIL HYDROCHLORIDE
     Dates: start: 20070103
  3. LANTUS [Concomitant]
     Active Substance: INSULIN GLARGINE
     Dates: start: 20070103
  4. DILTIAZEM [Concomitant]
     Active Substance: DILTIAZEM
     Dates: start: 20071115
  5. CEPHALEXIN. [Concomitant]
     Active Substance: CEPHALEXIN
     Dates: start: 20081206
  6. NIFEDIPINE. [Concomitant]
     Active Substance: NIFEDIPINE
     Dates: start: 20110309
  7. BYETTA [Suspect]
     Active Substance: EXENATIDE
     Route: 065
     Dates: start: 20071115
  8. METOPROLOL [Concomitant]
     Active Substance: METOPROLOL
     Dates: start: 20111027
  9. FERREX [Concomitant]
     Dates: start: 20111027
  10. BYETTA [Suspect]
     Active Substance: EXENATIDE
     Dosage: UNK
     Route: 065
     Dates: start: 200701, end: 201301
  11. ASPIRIN. [Concomitant]
     Active Substance: ASPIRIN
     Dates: start: 20070103
  12. FUROSEMIDE. [Concomitant]
     Active Substance: FUROSEMIDE
     Dates: start: 20070103
  13. NEXIUM [Concomitant]
     Active Substance: ESOMEPRAZOLE MAGNESIUM
     Dates: start: 20070103
  14. CALCITRIOL. [Concomitant]
     Active Substance: CALCITRIOL
     Dates: start: 20110309
  15. ACTOS [Concomitant]
     Active Substance: PIOGLITAZONE HYDROCHLORIDE
     Dates: start: 20060110
  16. ALLEGRA [Concomitant]
     Active Substance: FEXOFENADINE HYDROCHLORIDE
     Dates: start: 20060110
  17. DARVOCET [Concomitant]
     Active Substance: ACETAMINOPHEN\PROPOXYPHENE HYDROCHLORIDE
     Dates: start: 20070103
  18. BENICAR [Concomitant]
     Active Substance: OLMESARTAN MEDOXOMIL
     Dates: start: 20071115
  19. LYRICA [Concomitant]
     Active Substance: PREGABALIN
     Dates: start: 20110309
  20. ERGOCALCIFEROL. [Concomitant]
     Active Substance: ERGOCALCIFEROL
     Dates: start: 20110309
  21. DEXILANT [Concomitant]
     Active Substance: DEXLANSOPRAZOLE
     Dates: start: 20111027
  22. CALCIUM CARBONATE. [Concomitant]
     Active Substance: CALCIUM CARBONATE
     Dates: start: 20130603
  23. CYCLOBENZAPRINE [Concomitant]
     Active Substance: CYCLOBENZAPRINE
     Dates: start: 20120723
  24. CELEXA [Concomitant]
     Active Substance: CITALOPRAM HYDROBROMIDE
     Dates: start: 20070103
  25. SINGULAIR [Concomitant]
     Active Substance: MONTELUKAST SODIUM
     Dates: start: 20120212
  26. PLAVIX [Concomitant]
     Active Substance: CLOPIDOGREL BISULFATE
     Dates: start: 20111215
  27. LISINOPRIL AND HYDROCHLOROTHIAZIDE [Concomitant]
     Active Substance: HYDROCHLOROTHIAZIDE\LISINOPRIL
     Dosage: 20-12.5, EVERY DAY
     Dates: start: 20081208
  28. TRICOR [Concomitant]
     Active Substance: FENOFIBRATE
     Dates: start: 20070103
  29. GLUCOPHAGE [Concomitant]
     Active Substance: METFORMIN HYDROCHLORIDE
     Dates: start: 20070103
  30. OXYCODONE [Concomitant]
     Active Substance: OXYCODONE
     Dates: start: 20070103
  31. CLONIDINE. [Concomitant]
     Active Substance: CLONIDINE
     Dates: start: 20090423
  32. ZETIA [Concomitant]
     Active Substance: EZETIMIBE
     Dates: start: 20110309
  33. CRESTOR [Concomitant]
     Active Substance: ROSUVASTATIN CALCIUM
     Dates: start: 20070103
  34. HYDRALAZINE [Concomitant]
     Active Substance: HYDRALAZINE HYDROCHLORIDE
     Dates: start: 20090318
  35. LEVOTHYROXINE. [Concomitant]
     Active Substance: LEVOTHYROXINE
     Dates: start: 20130603
  36. OLOPATADINE [Concomitant]
     Active Substance: OLOPATADINE
     Dates: start: 20130722

REACTIONS (3)
  - Papillary thyroid cancer [Unknown]
  - Hypothyroidism [Unknown]
  - Goitre [Unknown]

NARRATIVE: CASE EVENT DATE: 201302
